FAERS Safety Report 10366161 (Version 4)
Quarter: 2014Q3

REPORT INFORMATION
  Report Type: Report from Study
  Country: US (occurrence: US)
  Receive Date: 20140806
  Receipt Date: 20140905
  Transmission Date: 20150326
  Serious: Yes (Death, Hospitalization)
  Sender: FDA-Public Use
  Company Number: US-JNJFOC-20140605977

PATIENT
  Age: 87 Year
  Sex: Male
  Weight: 78.02 kg

DRUGS (34)
  1. ISORDIL [Concomitant]
     Active Substance: ISOSORBIDE DINITRATE
     Dosage: TAKE 1 TABLET BY ORAL ROUTE 3 TIMES EVERY DAY ON AN EMPTY STOMACH
     Route: 048
     Dates: start: 20130603
  2. BENTYL [Concomitant]
     Active Substance: DICYCLOMINE HYDROCHLORIDE
     Indication: IRRITABLE BOWEL SYNDROME
     Route: 048
     Dates: start: 20100923
  3. CLARITIN [Concomitant]
     Active Substance: LORATADINE
     Route: 048
     Dates: start: 20100624
  4. PRILOSEC [Concomitant]
     Active Substance: OMEPRAZOLE MAGNESIUM
     Route: 048
     Dates: start: 20100624
  5. NUCYNTA [Suspect]
     Active Substance: TAPENTADOL HYDROCHLORIDE
     Indication: PRODUCT USED FOR UNKNOWN INDICATION
     Route: 048
  6. KETOROLAC [Concomitant]
     Active Substance: KETOROLAC\KETOROLAC TROMETHAMINE
     Dosage: FOR 5 DAYS
     Route: 048
     Dates: start: 20131029
  7. NORVASC [Concomitant]
     Active Substance: AMLODIPINE BESYLATE
     Route: 048
     Dates: start: 20130603
  8. NITROQUICK [Concomitant]
     Active Substance: NITROGLYCERIN
     Route: 060
     Dates: start: 20100624
  9. ZESTRIL [Concomitant]
     Active Substance: LISINOPRIL
     Route: 048
  10. ATIVAN [Concomitant]
     Active Substance: LORAZEPAM
     Route: 048
     Dates: start: 20130930
  11. ATIVAN [Concomitant]
     Active Substance: LORAZEPAM
     Route: 048
  12. FISH OIL [Concomitant]
     Active Substance: FISH OIL
     Route: 048
     Dates: start: 20130603
  13. LASIX [Concomitant]
     Active Substance: FUROSEMIDE
     Route: 048
     Dates: start: 20100624
  14. TYLENOL WITH CODEINE [Concomitant]
     Active Substance: ACETAMINOPHEN\CODEINE PHOSPHATE
     Indication: PRODUCT USED FOR UNKNOWN INDICATION
     Route: 048
     Dates: start: 20131114
  15. CLOTRIMAZOLE. [Concomitant]
     Active Substance: CLOTRIMAZOLE
     Dosage: APPLY 1 UNIT 2 - 3 TIMES EVERY DAY TO AFFECTED AREAS
     Route: 061
     Dates: start: 20130805
  16. GABAPENTIN. [Concomitant]
     Active Substance: GABAPENTIN
     Route: 048
     Dates: start: 20131031
  17. XALATAN [Concomitant]
     Active Substance: LATANOPROST
     Route: 047
  18. ZETIA [Concomitant]
     Active Substance: EZETIMIBE
     Route: 048
  19. ZOCOR [Concomitant]
     Active Substance: SIMVASTATIN
     Route: 048
     Dates: start: 20100624
  20. MEDROL [Concomitant]
     Active Substance: METHYLPREDNISOLONE
     Route: 065
     Dates: start: 20131125
  21. XALATAN [Concomitant]
     Active Substance: LATANOPROST
     Dosage: INSTILL 1 DROP BY OPHTHALMIC ROUTE EVERY DAY INTO BOTH EYES IN THE EVENING
     Route: 047
     Dates: start: 20130603
  22. MULTIVITAMIN TABLET [Concomitant]
     Dosage: TAKE 1 TABLET BY ORAL ROUTE EVERY DAY
     Route: 048
     Dates: start: 20130603
  23. ALBUTEROL. [Concomitant]
     Active Substance: ALBUTEROL
     Dosage: INHALE 17 GRAM BY INHALATION ROUTE 4 TIMES EVERY DAY AS NEEDED
     Route: 055
     Dates: start: 20130603
  24. ZETIA [Concomitant]
     Active Substance: EZETIMIBE
     Route: 048
     Dates: start: 20130603
  25. VIAGRA [Concomitant]
     Active Substance: SILDENAFIL CITRATE
     Route: 048
     Dates: start: 20120227
  26. ALBUTEROL SULFATE. [Concomitant]
     Active Substance: ALBUTEROL SULFATE
     Route: 065
     Dates: start: 20110520
  27. PLAVIX [Concomitant]
     Active Substance: CLOPIDOGREL BISULFATE
     Route: 048
     Dates: start: 20100624
  28. PRINIVIL [Concomitant]
     Active Substance: LISINOPRIL
     Route: 048
     Dates: start: 20100624
  29. LASIX [Concomitant]
     Active Substance: FUROSEMIDE
     Route: 048
  30. MIRALAX [Concomitant]
     Active Substance: POLYETHYLENE GLYCOL 3350
     Route: 048
  31. PAXIL [Concomitant]
     Active Substance: PAROXETINE HYDROCHLORIDE
     Route: 048
     Dates: start: 20130603
  32. ZOCOR [Concomitant]
     Active Substance: SIMVASTATIN
     Route: 048
  33. CENTRUM SILVER [Concomitant]
     Active Substance: VITAMINS
     Route: 048
     Dates: start: 20100624
  34. NAPROSYN [Concomitant]
     Active Substance: NAPROXEN
     Route: 048

REACTIONS (9)
  - Dizziness [Unknown]
  - Death [Fatal]
  - Asthenia [Unknown]
  - Hallucination [Unknown]
  - Back pain [Unknown]
  - Fall [Unknown]
  - Presyncope [Unknown]
  - Confusional state [Unknown]
  - Tremor [Unknown]

NARRATIVE: CASE EVENT DATE: 20131223
